FAERS Safety Report 24034252 (Version 1)
Quarter: 2024Q3

REPORT INFORMATION
  Report Type: Spontaneous
  Country: US (occurrence: US)
  Receive Date: 20240701
  Receipt Date: 20240701
  Transmission Date: 20241017
  Serious: No
  Sender: CHATTEM
  Company Number: US-OPELLA-2024OHG022094

PATIENT
  Age: 59 Year
  Sex: Female

DRUGS (2)
  1. XYZAL [Suspect]
     Active Substance: LEVOCETIRIZINE DIHYDROCHLORIDE
     Indication: Mast cell activation syndrome
     Dosage: 4 PILLS A DAY, 2 AT NIGHT AND 2 AT MORNING
     Route: 065
  2. ZYRTEC [Suspect]
     Active Substance: CETIRIZINE HYDROCHLORIDE
     Indication: Product used for unknown indication
     Route: 065
     Dates: start: 202406, end: 202406

REACTIONS (3)
  - Product use in unapproved indication [Unknown]
  - Intentional product misuse [Unknown]
  - No adverse event [Unknown]
